FAERS Safety Report 16909727 (Version 1)
Quarter: 2019Q4

REPORT INFORMATION
  Report Type: Report from Study
  Country: US (occurrence: US)
  Receive Date: 20191011
  Receipt Date: 20191011
  Transmission Date: 20200122
  Serious: Yes (Other)
  Sender: FDA-Public Use
  Company Number: US-TEVA-2019-US-1119585

PATIENT
  Sex: Female

DRUGS (2)
  1. COPAXONE [Suspect]
     Active Substance: GLATIRAMER ACETATE
     Indication: MULTIPLE SCLEROSIS
     Route: 058
  2. COPAXONE [Suspect]
     Active Substance: GLATIRAMER ACETATE
     Route: 058

REACTIONS (6)
  - Diarrhoea [Recovering/Resolving]
  - Injection site pain [Unknown]
  - Injection site necrosis [Unknown]
  - Restless legs syndrome [Unknown]
  - Muscular weakness [Unknown]
  - Walking aid user [Unknown]
